FAERS Safety Report 9050629 (Version 2)
Quarter: 2013Q2

REPORT INFORMATION
  Report Type: Report from Study
  Country: CZ (occurrence: CZ)
  Receive Date: 20130205
  Receipt Date: 20130503
  Transmission Date: 20140414
  Serious: Yes (Hospitalization, Other)
  Sender: FDA-Public Use
  Company Number: CZ-ABBOTT-13P-217-1043339-00

PATIENT
  Age: 64 Year
  Sex: Male

DRUGS (1)
  1. HUMIRA [Suspect]
     Indication: RHEUMATOID ARTHRITIS
     Route: 058
     Dates: end: 20130102

REACTIONS (4)
  - Kidney rupture [Recovered/Resolved]
  - Renal disorder [Unknown]
  - Renal disorder [Recovered/Resolved]
  - Nephrolithiasis [Recovered/Resolved]
